FAERS Safety Report 4392118-7 (Version None)
Quarter: 2004Q3

REPORT INFORMATION
  Report Type: 
  Country: None (occurrence: None)
  Receive Date: 20040702
  Receipt Date: 20040129
  Transmission Date: 20050211
  Serious: Yes (Other)
  Sender: FDA-Public Use
  Company Number: 2004UW01622

PATIENT
  Age: 58 Year
  Sex: Male
  Weight: 86.1834 kg

DRUGS (4)
  1. CRESTOR [Suspect]
     Indication: BLOOD CHOLESTEROL INCREASED
     Dosage: 10 MG PO
     Route: 048
  2. VIOXX [Concomitant]
  3. ARTHRITIS BAYER TIMED RELEASE ASPIRIN [Concomitant]
  4. MULTI-VITAMINS [Concomitant]

REACTIONS (5)
  - ABDOMINAL DISTENSION [None]
  - DIZZINESS [None]
  - MUSCULAR WEAKNESS [None]
  - TREMOR [None]
  - VISION BLURRED [None]
